FAERS Safety Report 9188247 (Version 3)
Quarter: 2013Q3

REPORT INFORMATION
  Report Type: Report from Study
  Country: US (occurrence: US)
  Receive Date: 20130325
  Receipt Date: 20130918
  Transmission Date: 20140515
  Serious: Yes (Hospitalization)
  Sender: FDA-Public Use
  Company Number: US-JNJFOC-20130310076

PATIENT
  Age: 63 Year
  Sex: Female
  Weight: 61.69 kg

DRUGS (29)
  1. GOLIMUMAB [Suspect]
     Indication: RHEUMATOID ARTHRITIS
     Route: 058
     Dates: start: 20111228
  2. GOLIMUMAB [Suspect]
     Indication: RHEUMATOID ARTHRITIS
     Route: 058
     Dates: start: 20130102
  3. VITAMIN B12 [Concomitant]
     Route: 050
  4. CALCIUM CARBONATE [Concomitant]
  5. METHOTREXATE [Concomitant]
     Indication: RHEUMATOID ARTHRITIS
     Route: 050
  6. FOLIC ACID [Concomitant]
     Route: 048
  7. MULTIVITAMINS [Concomitant]
     Route: 048
  8. RESTASIS [Concomitant]
     Indication: DRY EYE
     Dosage: 0.05%
     Route: 047
     Dates: start: 20051229
  9. CITALOPRAM [Concomitant]
     Indication: DEPRESSION
     Route: 048
     Dates: start: 20080729
  10. LEVOTHYROXINE [Concomitant]
     Indication: HYPOTHYROIDISM
     Route: 048
     Dates: start: 20090710
  11. AMLODIPINE [Concomitant]
     Indication: HYPERTENSION
     Route: 048
     Dates: start: 20101014
  12. DICLOFENAC [Concomitant]
     Indication: RHEUMATOID ARTHRITIS
     Route: 048
     Dates: start: 20080729
  13. DICLOFENAC [Concomitant]
     Indication: RHEUMATOID ARTHRITIS
     Route: 048
  14. AMITRIPTYLINE [Concomitant]
     Indication: FIBROMYALGIA
     Route: 048
  15. AMITRIPTYLINE [Concomitant]
     Indication: FIBROMYALGIA
     Route: 048
     Dates: start: 20101213
  16. NORCO [Concomitant]
     Dosage: 10/325, 1-2 EVERY 4 HOURS AS NEEDED
     Route: 048
     Dates: start: 20100215
  17. TERIPARATIDE [Concomitant]
     Indication: OSTEOPOROSIS
     Route: 058
     Dates: start: 20120613
  18. COUMADIN [Concomitant]
     Indication: THROMBOSIS
     Route: 048
     Dates: start: 20130207, end: 20130301
  19. NEXIUM [Concomitant]
     Indication: GASTROOESOPHAGEAL REFLUX DISEASE
  20. COLACE [Concomitant]
  21. VITAMIN D3 [Concomitant]
  22. MILK OF MAGNESIA [Concomitant]
     Indication: DYSPEPSIA
  23. DULCOLAX [Concomitant]
     Indication: CONSTIPATION
     Route: 054
  24. MAGNESIUM OXIDE [Concomitant]
  25. XANAX [Concomitant]
  26. ASPIRIN [Concomitant]
  27. FERROUS SULFATE [Concomitant]
  28. MIRALAX [Concomitant]
     Indication: CONSTIPATION
  29. ZOFRAN [Concomitant]
     Indication: NAUSEA
     Route: 048

REACTIONS (3)
  - Upper gastrointestinal haemorrhage [Recovered/Resolved]
  - Small intestinal obstruction [Recovered/Resolved]
  - Acute myocardial infarction [Recovered/Resolved]
